FAERS Safety Report 21776728 (Version 1)
Quarter: 2022Q4

REPORT INFORMATION
  Report Type: Report from Study
  Country: US (occurrence: US)
  Receive Date: 20221226
  Receipt Date: 20221226
  Transmission Date: 20230113
  Serious: No
  Sender: FDA-Public Use
  Company Number: US-ABBVIE-4198377

PATIENT
  Sex: Female

DRUGS (1)
  1. SKYRIZI [Suspect]
     Active Substance: RISANKIZUMAB-RZAA
     Indication: Psoriatic arthropathy
     Dosage: WEEK 0, WEEK 4 AND THEN EVERY 12 WEEKS THEREAFTER?FORM STRENGTH: 150 MG
     Route: 058
     Dates: start: 202207

REACTIONS (1)
  - Psoriatic arthropathy [Unknown]
